FAERS Safety Report 7651345-3 (Version None)
Quarter: 2011Q3

REPORT INFORMATION
  Report Type: 
  Country: None (occurrence: None)
  Receive Date: 20110802
  Receipt Date: 20110719
  Transmission Date: 20111222
  Serious: Yes (Other)
  Sender: FDA-Public Use
  Company Number: PHHY2011BR66238

PATIENT
  Sex: Male

DRUGS (6)
  1. GLIMEPIRIDE [Concomitant]
     Indication: DIABETES MELLITUS
     Dosage: 2 TABLETS OF 2 MG, DAILY
     Route: 048
  2. DIOVAN [Suspect]
     Indication: HYPERTENSION
     Dosage: 320 MG, DAILY
     Route: 048
  3. ASPIRIN [Concomitant]
     Indication: ANTICOAGULANT THERAPY
     Dosage: 2 DF, DAILY
  4. CLONIDINE HYDROCHLORIDE [Concomitant]
     Indication: HYPERTENSION
     Dosage: 1 DF, EACH 8 HOURS
     Route: 048
  5. BALCOR [Concomitant]
     Dosage: 1 DF, EACH 8 HOURS
     Route: 048
     Dates: start: 20110101
  6. METFORMIN HCL [Concomitant]
     Indication: DIABETES MELLITUS
     Dosage: 2 TABLETS OF 850 MG, DAILY
     Route: 048

REACTIONS (3)
  - VENOUS OCCLUSION [None]
  - VASCULAR GRAFT OCCLUSION [None]
  - INFARCTION [None]
